FAERS Safety Report 5937110-3 (Version None)
Quarter: 2008Q4

REPORT INFORMATION
  Report Type: 
  Country: None (occurrence: None)
  Receive Date: 20081031
  Receipt Date: 20081022
  Transmission Date: 20090506
  Serious: Yes (Other)
  Sender: FDA-Public Use
  Company Number: PHBS2007IE18796

PATIENT
  Age: 7 Year
  Sex: Female

DRUGS (1)
  1. SYNTOCINON [Suspect]
     Route: 064

REACTIONS (11)
  - BRAIN INJURY [None]
  - CEREBRAL PALSY [None]
  - FOETAL DISTRESS SYNDROME [None]
  - GENERAL PHYSICAL CONDITION ABNORMAL [None]
  - HEAD INJURY [None]
  - LIFE EXPECTANCY SHORTENED [None]
  - MOVEMENT DISORDER [None]
  - MUSCLE SPASTICITY [None]
  - RESUSCITATION [None]
  - SPEECH DISORDER [None]
  - WHEELCHAIR USER [None]
